FAERS Safety Report 6124239-2 (Version None)
Quarter: 2009Q1

REPORT INFORMATION
  Report Type: 
  Country: None (occurrence: None)
  Receive Date: 20090317
  Receipt Date: 20090305
  Transmission Date: 20090719
  Serious: Yes (Disabling)
  Sender: FDA-Public Use
  Company Number: 208328

PATIENT
  Sex: Female

DRUGS (1)
  1. MARCAINE [Suspect]
     Indication: ANAESTHESIA
     Dosage: CONTINUOUS, INJECTION^/UP TO 72 HOURS OR MORE^)

REACTIONS (4)
  - CHONDROLYSIS [None]
  - CHONDROPATHY [None]
  - MUSCULOSKELETAL DISCOMFORT [None]
  - PAIN [None]
